FAERS Safety Report 21344766 (Version 1)
Quarter: 2022Q3

REPORT INFORMATION
  Report Type: Spontaneous
  Country: US (occurrence: US)
  Receive Date: 20220916
  Receipt Date: 20220916
  Transmission Date: 20221026
  Serious: Yes (Other)
  Sender: FDA-Public Use
  Company Number: US-SA-2022SA381548

PATIENT
  Age: 81 Year
  Sex: Male
  Weight: 72.56 kg

DRUGS (3)
  1. PLAVIX [Suspect]
     Active Substance: CLOPIDOGREL BISULFATE
     Indication: Product used for unknown indication
     Route: 065
  2. XTANDI [Suspect]
     Active Substance: ENZALUTAMIDE
     Indication: Prostate cancer
     Dosage: 160 MG, QD
     Route: 048
     Dates: start: 20220715
  3. XTANDI [Suspect]
     Active Substance: ENZALUTAMIDE
     Dosage: DECREASED DOSE AND FREQUENCY
     Route: 048
     Dates: start: 2022

REACTIONS (1)
  - Thrombosis [Unknown]
